FAERS Safety Report 9098303 (Version 1)
Quarter: 2013Q1

REPORT INFORMATION
  Report Type: Spontaneous
  Country: US (occurrence: US)
  Receive Date: 20130213
  Receipt Date: 20130213
  Transmission Date: 20140127
  Serious: Yes (Death)
  Sender: FDA-Public Use
  Company Number: US-ABBOTT-13P-163-1048038-00

PATIENT
  Sex: Male
  Weight: 111.23 kg

DRUGS (3)
  1. ANDROGEL [Suspect]
     Indication: BLOOD TESTOSTERONE DECREASED
     Dosage: 4 PUMPS DAILY
     Route: 061
     Dates: start: 2011, end: 20120701
  2. UNKNOWN DIGESTIVE MEDICATIONS [Concomitant]
     Indication: DYSPEPSIA
     Dates: end: 20120701
  3. UNKNOWN OTHER MEDICATIONS [Concomitant]
     Indication: PRODUCT USED FOR UNKNOWN INDICATION
     Dates: end: 20120701

REACTIONS (3)
  - Death [Fatal]
  - Cerebrovascular accident [Fatal]
  - Blood testosterone decreased [Unknown]
